FAERS Safety Report 13344564 (Version 1)
Quarter: 2017Q1

REPORT INFORMATION
  Report Type: Spontaneous
  Country: FR (occurrence: FR)
  Receive Date: 20170317
  Receipt Date: 20170317
  Transmission Date: 20170428
  Serious: Yes (Hospitalization)
  Sender: FDA-Public Use
  Company Number: FR-ROCHE-1905914

PATIENT
  Age: 74 Year
  Sex: Female

DRUGS (6)
  1. SINEMET [Concomitant]
     Active Substance: CARBIDOPA\LEVODOPA
  2. GAZYVARO [Suspect]
     Active Substance: OBINUTUZUMAB
     Indication: CHRONIC LYMPHOCYTIC LEUKAEMIA
     Dosage: SOLUTION TO DILUTE FOR INFUSION
     Route: 042
     Dates: start: 20170216
  3. EFFEXOR [Concomitant]
     Active Substance: VENLAFAXINE HYDROCHLORIDE
     Route: 065
  4. APROVEL [Concomitant]
     Active Substance: IRBESARTAN
     Route: 065
  5. CHLORAMINOPHENE [Suspect]
     Active Substance: CHLORAMBUCIL
     Indication: NEOPLASM MALIGNANT
     Route: 065
     Dates: start: 20170216
  6. AZILECT [Concomitant]
     Active Substance: RASAGILINE MESYLATE
     Route: 065

REACTIONS (1)
  - Hepatocellular injury [Unknown]

NARRATIVE: CASE EVENT DATE: 20170217
